FAERS Safety Report 10675107 (Version 3)
Quarter: 2015Q1

REPORT INFORMATION
  Report Type: Spontaneous
  Country: US (occurrence: US)
  Receive Date: 20141224
  Receipt Date: 20150224
  Transmission Date: 20150720
  Serious: No
  Sender: FDA-Public Use
  Company Number: US-GLAXOSMITHKLINE-US2014GSK041795

PATIENT
  Sex: Male

DRUGS (2)
  1. PROPAFENONE HYDROCHLORIDE MODIFIED-RELEASE CAPSULE, HARD [Suspect]
     Active Substance: PROPAFENONE HYDROCHLORIDE
  2. RYTHMOL SR [Suspect]
     Active Substance: PROPAFENONE HYDROCHLORIDE
     Indication: ATRIAL FIBRILLATION
     Dosage: 325 MG, BID

REACTIONS (2)
  - Panic attack [Not Recovered/Not Resolved]
  - Confusional state [Not Recovered/Not Resolved]
